FAERS Safety Report 12075654 (Version 1)
Quarter: 2016Q1

REPORT INFORMATION
  Report Type: Spontaneous
  Country: CA (occurrence: CA)
  Receive Date: 20160213
  Receipt Date: 20160213
  Transmission Date: 20160526
  Serious: Yes (Other)
  Sender: FDA-Public Use
  Company Number: CA-JNJFOC-20160204694

PATIENT
  Age: 48 Year
  Sex: Female
  Weight: 58.06 kg

DRUGS (1)
  1. BENADRYL ES ALLERGY 50MG [Suspect]
     Active Substance: DIPHENHYDRAMINE HYDROCHLORIDE
     Indication: FOOD ALLERGY
     Dosage: 1 PILL (2 IF NEEDED)EVERY 4 HOURS FOR 2 DAYS
     Route: 048

REACTIONS (5)
  - Condition aggravated [None]
  - Rash [Recovered/Resolved]
  - Off label use [Recovered/Resolved]
  - Documented hypersensitivity to administered product [None]
  - Product use issue [Recovered/Resolved]
